FAERS Safety Report 7346772-8 (Version None)
Quarter: 2011Q1

REPORT INFORMATION
  Report Type: 
  Country: None (occurrence: None)
  Receive Date: 20110311
  Receipt Date: 20110228
  Transmission Date: 20110831
  Serious: Yes (Other)
  Sender: FDA-Public Use
  Company Number: CA-JNJFOC-20110301631

PATIENT
  Sex: Female
  Weight: 69 kg

DRUGS (5)
  1. PROMETRIUM [Concomitant]
  2. ESTROGEL [Concomitant]
  3. PAXIL [Concomitant]
  4. REMICADE [Suspect]
     Indication: CROHN'S DISEASE
     Route: 042
  5. LOMOTIL [Concomitant]

REACTIONS (2)
  - ASCITES [None]
  - ABDOMINAL INFECTION [None]
